FAERS Safety Report 24713148 (Version 1)
Quarter: 2024Q4

REPORT INFORMATION
  Report Type: Spontaneous
  Country: US (occurrence: None)
  Receive Date: 20241209
  Receipt Date: 20241209
  Transmission Date: 20250114
  Serious: No
  Sender: Public
  Company Number: None

PATIENT
  Sex: 0

DRUGS (1)
  1. PROVERA [Suspect]
     Active Substance: MEDROXYPROGESTERONE ACETATE

REACTIONS (1)
  - Drug ineffective [None]
